FAERS Safety Report 7388112-4 (Version None)
Quarter: 2011Q2

REPORT INFORMATION
  Report Type: 
  Country: None (occurrence: None)
  Receive Date: 20110401
  Receipt Date: 20101208
  Transmission Date: 20111010
  Serious: Yes (Death, Other)
  Sender: FDA-Public Use
  Company Number: JP-BAYER-201015407BYL

PATIENT
  Age: 76 Year

DRUGS (2)
  1. NEXAVAR [Suspect]
     Indication: RENAL CELL CARCINOMA
     Dosage: 800 MG (DAILY DOSE), ORAL
     Route: 048
     Dates: end: 20101001
  2. CORTICOSTEROID NOS [Suspect]
     Indication: BRAIN OEDEMA
     Dosage: UNK
     Route: 065

REACTIONS (2)
  - DUODENAL ULCER [None]
  - RENAL CELL CARCINOMA [None]
